FAERS Safety Report 17837677 (Version 1)
Quarter: 2020Q2

REPORT INFORMATION
  Report Type: Spontaneous
  Country: US (occurrence: US)
  Receive Date: 20200528
  Receipt Date: 20200528
  Transmission Date: 20200714
  Serious: Yes (Other)
  Sender: FDA-Public Use
  Company Number: US-NAPPMUNDI-USA-2020-0153650

PATIENT
  Sex: Female

DRUGS (2)
  1. OXYCODONE HYDROCHLORIDE (SIMILAR TO NDA 22-272) [Suspect]
     Active Substance: OXYCODONE HYDROCHLORIDE
     Indication: ARM AMPUTATION
     Dosage: 10 MG, Q6H
     Route: 048
  2. OXYCODONE HYDROCHLORIDE. [Suspect]
     Active Substance: OXYCODONE HYDROCHLORIDE
     Indication: ARM AMPUTATION
     Dosage: 10 MG, Q6H
     Route: 048
     Dates: start: 202001

REACTIONS (7)
  - Product physical issue [Unknown]
  - Therapeutic product effect decreased [Not Recovered/Not Resolved]
  - Rotator cuff syndrome [Unknown]
  - Bursitis [Unknown]
  - Intervertebral disc protrusion [Unknown]
  - Carpal tunnel syndrome [Unknown]
  - Product physical consistency issue [Unknown]

NARRATIVE: CASE EVENT DATE: 2019
